FAERS Safety Report 11305225 (Version 1)
Quarter: 2015Q3

REPORT INFORMATION
  Report Type: Spontaneous
  Country: US (occurrence: US)
  Receive Date: 20150723
  Receipt Date: 20150723
  Transmission Date: 20151125
  Serious: No
  Sender: FDA-Public Use
  Company Number: US-JNJFOC-20150424720

PATIENT
  Age: 75 Year
  Sex: Female
  Weight: 80.29 kg

DRUGS (2)
  1. ZYRTEC [Suspect]
     Active Substance: CETIRIZINE HYDROCHLORIDE
     Route: 048
  2. ZYRTEC [Suspect]
     Active Substance: CETIRIZINE HYDROCHLORIDE
     Indication: PRODUCT USED FOR UNKNOWN INDICATION
     Route: 048
     Dates: start: 20150427

REACTIONS (4)
  - Somnolence [Not Recovered/Not Resolved]
  - Therapeutic response increased [Unknown]
  - Wrong patient received medication [Unknown]
  - Fatigue [Not Recovered/Not Resolved]
